FAERS Safety Report 12765458 (Version 1)
Quarter: 2016Q3

REPORT INFORMATION
  Report Type: Spontaneous
  Country: CO (occurrence: CO)
  Receive Date: 20160921
  Receipt Date: 20160921
  Transmission Date: 20161109
  Serious: Yes (Other)
  Sender: FDA-Public Use
  Company Number: CO-ALEMBIC PHARMACUETICALS LIMITED-2016SCAL000742

PATIENT

DRUGS (6)
  1. LITHIUM CARBONATE. [Suspect]
     Active Substance: LITHIUM CARBONATE
     Dosage: RESTARTED
  2. ISOCARBOXAZID [Suspect]
     Active Substance: ISOCARBOXAZID
     Indication: DEPRESSION
     Dosage: 30 MG, EVERY 12 HOURS
     Route: 048
  3. ACETYLSALICYLIC ACID [Concomitant]
     Active Substance: ASPIRIN
     Indication: PRODUCT USED FOR UNKNOWN INDICATION
     Dosage: UNK
  4. LITHIUM CARBONATE. [Suspect]
     Active Substance: LITHIUM CARBONATE
     Indication: DEPRESSION
     Dosage: 300 MG, EVERY 12 HOURS
     Route: 048
  5. ISOCARBOXAZID [Suspect]
     Active Substance: ISOCARBOXAZID
     Dosage: RESTARTED ON LOW DOSE
  6. PHENETHYLAMINE [Suspect]
     Active Substance: PHENETHYLAMINE
     Indication: DEPRESSION
     Dosage: 500 MG, SINGLE DOSE BY SELF-MEDICATION
     Route: 048

REACTIONS (1)
  - Stress cardiomyopathy [Unknown]
